FAERS Safety Report 11627926 (Version 1)
Quarter: 2015Q4

REPORT INFORMATION
  Report Type: Spontaneous
  Country: US (occurrence: None)
  Receive Date: 20151013
  Receipt Date: 20151013
  Transmission Date: 20160304
  Serious: No
  Sender: FDA-Public Use
  Company Number: None

PATIENT
  Age: 69 Year
  Sex: Female
  Weight: 56.7 kg

DRUGS (4)
  1. PROGESTERONE 200 MG [Suspect]
     Active Substance: PROGESTERONE
     Indication: HOT FLUSH
     Dosage: 1 PILL
     Route: 048
     Dates: start: 20151001, end: 20151003
  2. MULTIPLE VITAMINS [Concomitant]
     Active Substance: VITAMINS
  3. MUSINEX DM [Concomitant]
     Active Substance: DEXTROMETHORPHAN HYDROBROMIDE\GUAIFENESIN
  4. ARMOUR THYROID [Concomitant]
     Active Substance: THYROID, PORCINE\THYROID, UNSPECIFIED

REACTIONS (4)
  - Muscle disorder [None]
  - Posture abnormal [None]
  - Eye movement disorder [None]
  - Arthropathy [None]

NARRATIVE: CASE EVENT DATE: 20151002
